FAERS Safety Report 10547620 (Version 1)
Quarter: 2014Q4

REPORT INFORMATION
  Report Type: Spontaneous
  Country: US (occurrence: None)
  Receive Date: 20141010
  Receipt Date: 20141010
  Transmission Date: 20150529
  Serious: Yes (Other)
  Sender: FDA-Public Use
  Company Number: 163-POMAL-14062855

PATIENT
  Age: 68 Year
  Sex: Male
  Weight: 106 kg

DRUGS (2)
  1. POMALYST [Suspect]
     Active Substance: POMALIDOMIDE
     Indication: PLASMA CELL MYELOMA
     Dosage: 21 IN 28 D
     Route: 048
     Dates: start: 20131227, end: 20140422
  2. CARFILZOMIB [Concomitant]
     Active Substance: CARFILZOMIB

REACTIONS (2)
  - Deep vein thrombosis [None]
  - Platelet count decreased [None]

NARRATIVE: CASE EVENT DATE: 20140605
